FAERS Safety Report 11020786 (Version 4)
Quarter: 2015Q3

REPORT INFORMATION
  Report Type: Spontaneous
  Country: US (occurrence: US)
  Receive Date: 20150413
  Receipt Date: 20150806
  Transmission Date: 20151125
  Serious: Yes (Hospitalization, Other)
  Sender: FDA-Public Use
  Company Number: US-BIOGENIDEC-2015BI045779

PATIENT
  Age: 68 Year
  Sex: Female
  Weight: 54 kg

DRUGS (18)
  1. AMPYRA [Concomitant]
     Active Substance: DALFAMPRIDINE
     Indication: GAIT DISTURBANCE
     Route: 048
     Dates: start: 201502
  2. COREG [Concomitant]
     Active Substance: CARVEDILOL
  3. MACRODANTIN [Concomitant]
     Active Substance: NITROFURANTOIN
     Indication: PROPHYLAXIS URINARY TRACT INFECTION
  4. ASPIRIN. [Concomitant]
     Active Substance: ASPIRIN
  5. INSPRA [Concomitant]
     Active Substance: EPLERENONE
  6. TECFIDERA [Suspect]
     Active Substance: DIMETHYL FUMARATE
     Indication: MULTIPLE SCLEROSIS
     Route: 048
     Dates: start: 201412, end: 201412
  7. TECFIDERA [Suspect]
     Active Substance: DIMETHYL FUMARATE
     Indication: MULTIPLE SCLEROSIS
     Route: 048
     Dates: start: 201501
  8. VITAMIN D [Concomitant]
     Active Substance: CHOLECALCIFEROL
  9. INSULIN [Concomitant]
     Active Substance: INSULIN NOS
  10. TECFIDERA [Suspect]
     Active Substance: DIMETHYL FUMARATE
     Indication: MULTIPLE SCLEROSIS
     Route: 048
     Dates: start: 201412, end: 201501
  11. LIPITOR [Concomitant]
     Active Substance: ATORVASTATIN CALCIUM
  12. AMPYRA [Concomitant]
     Active Substance: DALFAMPRIDINE
     Indication: GAIT DISTURBANCE
     Route: 048
     Dates: start: 20140806, end: 20141104
  13. PLAVIX [Concomitant]
     Active Substance: CLOPIDOGREL BISULFATE
  14. CYMBALTA [Concomitant]
     Active Substance: DULOXETINE HYDROCHLORIDE
  15. XANAX [Concomitant]
     Active Substance: ALPRAZOLAM
  16. PROTONIX [Concomitant]
     Active Substance: PANTOPRAZOLE SODIUM
  17. TECFIDERA [Suspect]
     Active Substance: DIMETHYL FUMARATE
     Indication: MULTIPLE SCLEROSIS
     Route: 048
     Dates: end: 20141104
  18. FISH OIL [Concomitant]
     Active Substance: FISH OIL

REACTIONS (18)
  - Fear [Unknown]
  - Procedural pain [Unknown]
  - White blood cell count decreased [Recovered/Resolved]
  - Hip fracture [Not Recovered/Not Resolved]
  - Sleep disorder [Recovered/Resolved]
  - Urine odour abnormal [Not Recovered/Not Resolved]
  - Depression [Unknown]
  - Pollakiuria [Not Recovered/Not Resolved]
  - Balance disorder [Unknown]
  - Vomiting [Recovered/Resolved]
  - Femur fracture [Not Recovered/Not Resolved]
  - Intentional underdose [Recovered/Resolved]
  - Fall [Recovered/Resolved]
  - Cystitis [Unknown]
  - Fatigue [Unknown]
  - Asthenia [Unknown]
  - Urinary tract infection [Unknown]
  - Nausea [Recovered/Resolved]

NARRATIVE: CASE EVENT DATE: 20141104
